FAERS Safety Report 20003469 (Version 1)
Quarter: 2021Q4

REPORT INFORMATION
  Report Type: Spontaneous
  Country: US (occurrence: US)
  Receive Date: 20211027
  Receipt Date: 20211027
  Transmission Date: 20220304
  Serious: No
  Sender: FDA-Public Use
  Company Number: US-BAYER-2021A232605

PATIENT

DRUGS (1)
  1. CLARITIN [Suspect]
     Active Substance: LORATADINE
     Route: 048

REACTIONS (4)
  - Feeling abnormal [None]
  - Discomfort [Unknown]
  - Insomnia [Unknown]
  - Nervousness [Unknown]

NARRATIVE: CASE EVENT DATE: 20211018
